FAERS Safety Report 20826066 (Version 1)
Quarter: 2022Q2

REPORT INFORMATION
  Report Type: Spontaneous
  Country: CZ (occurrence: CZ)
  Receive Date: 20220513
  Receipt Date: 20220513
  Transmission Date: 20220721
  Serious: Yes (Other)
  Sender: FDA-Public Use
  Company Number: CZ-SA-SAC20220512000047

PATIENT
  Age: 72 Year
  Sex: Female

DRUGS (27)
  1. ENOXAPARIN SODIUM [Suspect]
     Active Substance: ENOXAPARIN SODIUM
  2. AMOXICILLIN TRIHYDRATE [Suspect]
     Active Substance: AMOXICILLIN
  3. CARBAMAZEPINE [Suspect]
     Active Substance: CARBAMAZEPINE
  4. CAPTOPRIL [Suspect]
     Active Substance: CAPTOPRIL
  5. CHOLECALCIFEROL [Suspect]
     Active Substance: CHOLECALCIFEROL
  6. ELIQUIS [Concomitant]
     Active Substance: APIXABAN
  7. CORDARONE [Concomitant]
     Active Substance: AMIODARONE HYDROCHLORIDE
     Dosage: 1 TABLET MONDAY-FRIDAY
  8. METOPROLOL SUCCINATE [Concomitant]
     Active Substance: METOPROLOL SUCCINATE
     Dosage: 1 DF
  9. XARELTO [Concomitant]
     Active Substance: RIVAROXABAN
     Dosage: 1 DF, TID
  10. RILMENIDINE [Concomitant]
     Active Substance: RILMENIDINE
     Dosage: 2 DF
  11. GLUCOPHAGE [Concomitant]
     Active Substance: METFORMIN HYDROCHLORIDE
     Dosage: 2 DF
  12. INDAPAMIDE [Concomitant]
     Active Substance: INDAPAMIDE
     Dosage: 1 DF
  13. TRAMADOL [Concomitant]
     Active Substance: TRAMADOL
     Dosage: 2 DF
  14. ALLOPURINOL [Concomitant]
     Active Substance: ALLOPURINOL
     Dosage: 1 DF, TID
  15. DIOSMIN\HESPERIDIN [Concomitant]
     Active Substance: DIOSMIN\HESPERIDIN
     Dosage: 2 DF
  16. SINGULAIR [Concomitant]
     Active Substance: MONTELUKAST SODIUM
     Dosage: 1 DF
  17. ATROVENT [Concomitant]
     Active Substance: IPRATROPIUM BROMIDE
     Dosage: SOLUTION 3X2 BREATHS
  18. IBUPROFEN [Concomitant]
     Active Substance: IBUPROFEN
  19. METOCLOPRAMIDE HYDROCHLORIDE [Concomitant]
     Active Substance: METOCLOPRAMIDE HYDROCHLORIDE
  20. AMLODIPINE BESYLATE [Concomitant]
     Active Substance: AMLODIPINE BESYLATE
     Dosage: 1 DF
  21. RAMIPRIL [Concomitant]
     Active Substance: RAMIPRIL
     Dosage: TAKING THE EVENING DOSE AT BEDTIME
  22. ATORVASTATIN [Concomitant]
     Active Substance: ATORVASTATIN
     Dosage: 1 DF
  23. OMEPRAZOLE [Concomitant]
     Active Substance: OMEPRAZOLE
     Dosage: 1 HOUR BEFORE A MEAL
  24. ALPRAZOLAM [Concomitant]
     Active Substance: ALPRAZOLAM
     Dosage: 2 DF
  25. CETIRIZINE HYDROCHLORIDE [Concomitant]
     Active Substance: CETIRIZINE HYDROCHLORIDE
     Dosage: 1 DF
  26. ERDOSTEINE [Concomitant]
     Active Substance: ERDOSTEINE
     Dosage: 2 DF
  27. NOVALGIN (METAMIZOLE SODIUM) [Concomitant]
     Active Substance: METAMIZOLE SODIUM

REACTIONS (27)
  - Marfan^s syndrome [Unknown]
  - Myocardial ischaemia [Unknown]
  - Tachycardia induced cardiomyopathy [Unknown]
  - Erysipelas [Unknown]
  - Atrial fibrillation [Unknown]
  - Type 2 diabetes mellitus [Unknown]
  - Transient ischaemic attack [Unknown]
  - Left ventricular dysfunction [Unknown]
  - Limb discomfort [Unknown]
  - Agitation [Unknown]
  - Restlessness [Unknown]
  - Decreased appetite [Unknown]
  - Rash [Unknown]
  - Hyperlipidaemia [Unknown]
  - Bronchitis [Unknown]
  - Chronic obstructive pulmonary disease [Unknown]
  - Osteoarthritis [Unknown]
  - Hyperuricaemia [Unknown]
  - Arthritis [Unknown]
  - Anaemia [Unknown]
  - Dyspepsia [Unknown]
  - Blood pressure increased [Unknown]
  - Spinal decompression [Unknown]
  - Spinal pain [Unknown]
  - Hypertension [Unknown]
  - Pruritus [Unknown]
  - Hypersensitivity [Unknown]
